FAERS Safety Report 5769366-4 (Version None)
Quarter: 2008Q2

REPORT INFORMATION
  Report Type: 
  Country: None (occurrence: None)
  Receive Date: 20080612
  Receipt Date: 20080328
  Transmission Date: 20081010
  Serious: No
  Sender: FDA-Public Use
  Company Number: US-ABBOTT-08P-163-0444522-00

PATIENT
  Sex: Female
  Weight: 71.278 kg

DRUGS (2)
  1. HUMIRA [Suspect]
     Indication: RHEUMATOID ARTHRITIS
     Route: 058
     Dates: start: 20070925
  2. TETANUS TOXOID [Suspect]
     Indication: DRUG USE FOR UNKNOWN INDICATION
     Dates: start: 20080322, end: 20080322

REACTIONS (1)
  - URTICARIA [None]
